FAERS Safety Report 9480360 (Version 1)
Quarter: 2013Q3

REPORT INFORMATION
  Report Type: Spontaneous
  Country: US (occurrence: US)
  Receive Date: 20130828
  Receipt Date: 20130828
  Transmission Date: 20140515
  Serious: Yes (Other)
  Sender: FDA-Public Use
  Company Number: US-AMGEN-KDL099931

PATIENT
  Age: 56 Year
  Sex: Female

DRUGS (2)
  1. ENBREL [Suspect]
     Indication: RHEUMATOID ARTHRITIS
     Dosage: 25 MG, 3 TIMES/WK
     Route: 058
     Dates: start: 19990101
  2. METHOTREXATE [Concomitant]

REACTIONS (6)
  - Adrenal insufficiency [None]
  - Papillary thyroid cancer [Unknown]
  - Thyroid cancer [Unknown]
  - Epstein-Barr virus antibody positive [Unknown]
  - Bacterial infection [Unknown]
  - Viral infection [Unknown]
